FAERS Safety Report 23656916 (Version 1)
Quarter: 2024Q1

REPORT INFORMATION
  Report Type: Spontaneous
  Country: US (occurrence: US)
  Receive Date: 20240321
  Receipt Date: 20240321
  Transmission Date: 20240410
  Serious: No
  Sender: FDA-Public Use
  Company Number: US-ABBVIE-5682669

PATIENT
  Sex: Male

DRUGS (1)
  1. LATISSE [Suspect]
     Active Substance: BIMATOPROST
     Indication: Growth of eyelashes
     Route: 047

REACTIONS (3)
  - Superficial vein prominence [Unknown]
  - Hypersensitivity [Unknown]
  - Application site irritation [Not Recovered/Not Resolved]
